FAERS Safety Report 4339372-5 (Version None)
Quarter: 2004Q2

REPORT INFORMATION
  Report Type: 
  Country: None (occurrence: None)
  Receive Date: 20040412
  Receipt Date: 20040402
  Transmission Date: 20050107
  Serious: Yes (Hospitalization)
  Sender: FDA-Public Use
  Company Number: 04P-163-0255939-00

PATIENT
  Age: 66 Year
  Sex: Female

DRUGS (7)
  1. HUMIRA [Suspect]
     Indication: RHEUMATOID ARTHRITIS
     Dosage: 40 MG, 2 IN 1 M, SUBCUTANEOUS
     Route: 058
     Dates: start: 20030324, end: 20030701
  2. ETANERCEPT [Suspect]
     Indication: RHEUMATOID ARTHRITIS
     Dosage: 25 MG, 2 IN 1 WK, SUBCUTANEOUS
     Route: 058
     Dates: start: 20030103, end: 20030324
  3. METHOTREXATE [Suspect]
     Dosage: 20 MG, 1 IN 1 WK, PER ORAL
     Route: 048
     Dates: start: 20020312, end: 20030723
  4. VALDECOXIB [Concomitant]
  5. RABEPRAZOLE SODIUM [Concomitant]
  6. ATENOLOL [Concomitant]
  7. PRENISONE [Concomitant]

REACTIONS (2)
  - CHEST PAIN [None]
  - PNEUMONITIS CRYPTOCOCCAL [None]
